FAERS Safety Report 5047706-1 (Version None)
Quarter: 2006Q2

REPORT INFORMATION
  Report Type: 
  Country: None (occurrence: None)
  Receive Date: 20060601
  Receipt Date: 20060206
  Transmission Date: 20061013
  Serious: No
  Sender: FDA-Public Use
  Company Number: US200602001098

PATIENT
  Age: 82 Year
  Sex: Female

DRUGS (6)
  1. CYMBALTA [Suspect]
     Indication: NEUROPATHY
     Dosage: 20 MG
     Dates: start: 20060202
  2. GLUCOPHAGE [Concomitant]
  3. PREDNISONE TAB [Concomitant]
  4. LIPITOR [Concomitant]
  5. COZAAR [Concomitant]
  6. FOSAMAX /ITA/ (ALENDRONATE SODIUM) [Concomitant]

REACTIONS (5)
  - ANOREXIA [None]
  - DIFFICULTY IN WALKING [None]
  - DRY MOUTH [None]
  - PAIN [None]
  - PAIN IN EXTREMITY [None]
